FAERS Safety Report 8811508 (Version 2)
Quarter: 2012Q4

REPORT INFORMATION
  Report Type: 
  Country: IT (occurrence: IT)
  Receive Date: 20120927
  Receipt Date: 20121010
  Transmission Date: 20130627
  Serious: Yes (Hospitalization)
  Sender: FDA-Public Use
  Company Number: IT-ELI_LILLY_AND_COMPANY-IT201209004257

PATIENT
  Age: 21 Year
  Sex: Female

DRUGS (1)
  1. CYMBALTA [Suspect]
     Indication: DEPRESSION
     Dosage: 60 mg, qd
     Route: 048
     Dates: start: 20120906, end: 20120906

REACTIONS (2)
  - Self injurious behaviour [Unknown]
  - Drug abuse [Unknown]
